FAERS Safety Report 13974596 (Version 1)
Quarter: 2017Q3

REPORT INFORMATION
  Report Type: Report from Study
  Country: EE (occurrence: EE)
  Receive Date: 20170915
  Receipt Date: 20170915
  Transmission Date: 20171128
  Serious: Yes (Death, Other)
  Sender: FDA-Public Use
  Company Number: EE-ROCHE-1942718

PATIENT

DRUGS (5)
  1. METHYLPREDNISOLONE. [Suspect]
     Active Substance: METHYLPREDNISOLONE
     Indication: PROPHYLAXIS AGAINST TRANSPLANT REJECTION
     Route: 042
  2. METHYLPREDNISOLONE. [Suspect]
     Active Substance: METHYLPREDNISOLONE
     Route: 048
  3. CYCLOSPORINE. [Suspect]
     Active Substance: CYCLOSPORINE
     Indication: PROPHYLAXIS AGAINST TRANSPLANT REJECTION
     Route: 048
  4. MYCOPHENOLATE MOFETIL. [Suspect]
     Active Substance: MYCOPHENOLATE MOFETIL
     Indication: PROPHYLAXIS AGAINST TRANSPLANT REJECTION
     Route: 065
  5. TACROLIMUS. [Suspect]
     Active Substance: TACROLIMUS
     Indication: PROPHYLAXIS AGAINST TRANSPLANT REJECTION
     Route: 048

REACTIONS (20)
  - Alanine aminotransferase increased [Unknown]
  - Herpes zoster [Unknown]
  - Diarrhoea [Unknown]
  - Thrombocytopenia [Unknown]
  - Vomiting [Unknown]
  - Abdominal pain [Unknown]
  - Large intestine perforation [Unknown]
  - Infection [Unknown]
  - Cytomegalovirus infection [Fatal]
  - Urinary tract infection [Unknown]
  - Anaemia [Unknown]
  - Gastritis haemorrhagic [Unknown]
  - Sepsis [Unknown]
  - Pneumonia [Unknown]
  - Discomfort [Unknown]
  - Wound infection [Unknown]
  - Fungal oesophagitis [Unknown]
  - Nausea [Unknown]
  - Dyspepsia [Unknown]
  - Leukopenia [Unknown]
